FAERS Safety Report 6707070-6 (Version None)
Quarter: 2010Q2

REPORT INFORMATION
  Report Type: 
  Country: None (occurrence: None)
  Receive Date: 20100423
  Receipt Date: 20091202
  Transmission Date: 20101027
  Serious: No
  Sender: FDA-Public Use
  Company Number: ALL1-2009-03891

PATIENT
  Age: 15 Year
  Sex: Male
  Weight: 65.3 kg

DRUGS (1)
  1. VYVANSE [Suspect]
     Indication: ATTENTION DEFICIT/HYPERACTIVITY DISORDER
     Dosage: 70 MG, 1X/DAY:QD, ORAL
     Route: 048
     Dates: start: 20090101

REACTIONS (2)
  - HEPATIC ENZYME INCREASED [None]
  - OFF LABEL USE [None]
